FAERS Safety Report 22318332 (Version 1)
Quarter: 2023Q2

REPORT INFORMATION
  Report Type: Other
  Country: US (occurrence: None)
  Receive Date: 20230515
  Receipt Date: 20230515
  Transmission Date: 20230722
  Serious: Yes (Hospitalization)
  Sender: FDA-Public Use
  Company Number: US-ROCHE-3343837

PATIENT
  Age: 42 Year
  Sex: Male
  Weight: 87.168 kg

DRUGS (6)
  1. OCREVUS [Suspect]
     Active Substance: OCRELIZUMAB
     Indication: Progressive multiple sclerosis
     Dosage: DATE OF TREATMENT: 19/APR/2023, 22/JUN/2022, 28/JUN/2021, 28/DEC/2020, 26/JUN/2020, 22/DEC/2021
     Route: 042
  2. WARFARIN [Concomitant]
     Active Substance: WARFARIN
     Dosage: 6 MG ORAL PILL, ONCE A DAY
     Dates: start: 2014
  3. ALBUTEROL [Concomitant]
     Active Substance: ALBUTEROL
     Indication: Asthma
     Dosage: 90 MCG AS NEEDED, INHALER ;ONGOING: YES
     Route: 055
  4. TYSABRI [Concomitant]
     Active Substance: NATALIZUMAB
  5. WARFARIN [Concomitant]
     Active Substance: WARFARIN
     Dosage: 6 MG ONCE DAILY
  6. PULMICORT TURBUHALER [Concomitant]
     Active Substance: BUDESONIDE
     Dosage: 90 MCG INHALER 2 PUFFS TWICE A DAY

REACTIONS (3)
  - Blood urine present [Recovered/Resolved]
  - Blood creatine phosphokinase increased [Unknown]
  - Fatigue [Unknown]

NARRATIVE: CASE EVENT DATE: 20221019
